FAERS Safety Report 4941388-2 (Version None)
Quarter: 2006Q1

REPORT INFORMATION
  Report Type: 
  Country: None (occurrence: None)
  Receive Date: 20060313
  Receipt Date: 20060207
  Transmission Date: 20060701
  Serious: Yes (Hospitalization, Disabling, Other)
  Sender: FDA-Public Use
  Company Number: US-MERCK-0602USA02124

PATIENT
  Age: 70 Year
  Sex: Male
  Weight: 100 kg

DRUGS (13)
  1. VIOXX [Suspect]
     Indication: ARTHRITIS
     Route: 048
     Dates: start: 20011001, end: 20030821
  2. VIOXX [Suspect]
     Route: 048
     Dates: start: 20030828, end: 20040127
  3. ASPIRIN [Concomitant]
     Route: 065
  4. ALTACE [Concomitant]
     Indication: HYPERTENSION
     Route: 065
  5. LIPITOR [Concomitant]
     Indication: BLOOD PRESSURE ABNORMAL
     Route: 065
  6. PLETAL [Concomitant]
     Route: 065
  7. NORVASC [Concomitant]
     Indication: HYPERTENSION
     Route: 065
  8. NORVASC [Concomitant]
     Indication: CHEST PAIN
     Route: 065
  9. FOLIC ACID [Concomitant]
     Route: 065
  10. LOPRESSOR [Concomitant]
     Indication: CHEST PAIN
     Route: 065
  11. LOPRESSOR [Concomitant]
     Indication: HYPERTENSION
     Route: 065
  12. NITROSTAT [Concomitant]
     Indication: CHEST PAIN
     Route: 060
  13. NEXIUM [Concomitant]
     Route: 065

REACTIONS (24)
  - ABDOMINAL PAIN [None]
  - ANGINA PECTORIS [None]
  - ANXIETY [None]
  - AORTIC ANEURYSM [None]
  - ARTHRITIS [None]
  - ATRIAL FIBRILLATION [None]
  - CARDIAC FAILURE [None]
  - CEREBROVASCULAR ACCIDENT [None]
  - CHEST PAIN [None]
  - CORONARY ARTERY DISEASE [None]
  - DIARRHOEA [None]
  - GASTRITIS [None]
  - HEPATOCELLULAR DAMAGE [None]
  - HYPERLIPIDAEMIA [None]
  - INJURY [None]
  - IODINE ALLERGY [None]
  - MYOCARDIAL INFARCTION [None]
  - NERVOUS SYSTEM DISORDER [None]
  - PAIN [None]
  - PULMONARY VASCULAR DISORDER [None]
  - RENAL CYST [None]
  - RENAL DISORDER [None]
  - RENAL FAILURE [None]
  - TRANSIENT ISCHAEMIC ATTACK [None]
